FAERS Safety Report 13477454 (Version 1)
Quarter: 2017Q2

REPORT INFORMATION
  Report Type: Spontaneous
  Country: SA (occurrence: US)
  Receive Date: 20170425
  Receipt Date: 20170425
  Transmission Date: 20170830
  Serious: Yes (Other)
  Sender: FDA-Public Use
  Company Number: None

PATIENT
  Age: 35 Year
  Sex: Male
  Weight: 62.7 kg

DRUGS (1)
  1. TACROLIMUS. [Suspect]
     Active Substance: TACROLIMUS
     Indication: TRANSPLANT
     Route: 048
     Dates: start: 20160321, end: 20160322

REACTIONS (3)
  - Thrombotic microangiopathy [None]
  - Complications of transplanted kidney [None]
  - Renal tubular necrosis [None]

NARRATIVE: CASE EVENT DATE: 20170322
